FAERS Safety Report 17516817 (Version 1)
Quarter: 2020Q1

REPORT INFORMATION
  Report Type: Spontaneous
  Country: US (occurrence: US)
  Receive Date: 20200227
  Receipt Date: 20200227
  Transmission Date: 20200409
  Serious: Yes (Hospitalization)
  Sender: FDA-Public Use
  Company Number: None

PATIENT
  Age: 78 Year
  Sex: Female
  Weight: 73.5 kg

DRUGS (1)
  1. ARIMIDEX [Suspect]
     Active Substance: ANASTROZOLE
     Dates: end: 20191223

REACTIONS (9)
  - Dyspnoea [None]
  - Delusion [None]
  - Productive cough [None]
  - Atrial fibrillation [None]
  - Cough [None]
  - Pleural effusion [None]
  - Lung infiltration [None]
  - Chest pain [None]
  - Paranoia [None]

NARRATIVE: CASE EVENT DATE: 20200214
